FAERS Safety Report 23891546 (Version 1)
Quarter: 2024Q2

REPORT INFORMATION
  Report Type: Spontaneous
  Country: US (occurrence: US)
  Receive Date: 20240524
  Receipt Date: 20240524
  Transmission Date: 20240716
  Serious: No
  Sender: FDA-Public Use
  Company Number: US-TAKEDA-2024TUS051257

PATIENT
  Sex: Female
  Weight: 51 kg

DRUGS (1)
  1. FOSRENOL [Suspect]
     Active Substance: LANTHANUM CARBONATE
     Indication: Blood phosphorus abnormal
     Route: 048

REACTIONS (2)
  - Intentional product misuse [Unknown]
  - No adverse event [Unknown]
